FAERS Safety Report 5304590-6 (Version None)
Quarter: 2007Q2

REPORT INFORMATION
  Report Type: 
  Country: None (occurrence: None)
  Receive Date: 20070423
  Receipt Date: 20070418
  Transmission Date: 20071010
  Serious: Yes (Life-Threatening, Hospitalization)
  Sender: FDA-Public Use
  Company Number: FR-GLAXOSMITHKLINE-B0448571A

PATIENT
  Age: 68 Year
  Sex: Male

DRUGS (17)
  1. AUGMENTIN '125' [Suspect]
     Indication: INFECTION
     Dosage: 3G PER DAY
     Route: 042
     Dates: start: 20061106, end: 20061109
  2. TRIFLUCAN [Suspect]
     Indication: INFECTION
     Route: 042
     Dates: start: 20061106, end: 20061109
  3. TRIFLUCAN [Suspect]
     Indication: INFECTION PARASITIC
     Route: 042
     Dates: start: 20061106, end: 20061109
  4. ETHYOL [Suspect]
     Dosage: 340MG THREE TIMES PER WEEK
     Route: 042
     Dates: start: 20060928, end: 20061106
  5. CIPROFLOXACIN HCL [Suspect]
     Indication: INFECTION
     Dosage: 500MG TWICE PER DAY
     Route: 048
     Dates: start: 20061106, end: 20061109
  6. CIPROFLOXACIN HCL [Suspect]
     Indication: INFECTION PARASITIC
     Dosage: 500MG TWICE PER DAY
     Route: 048
     Dates: start: 20061106, end: 20061109
  7. PERFALGAN [Suspect]
     Dosage: 1G PER DAY
     Dates: start: 20061106, end: 20061107
  8. PRIMPERAN INJ [Suspect]
     Indication: NAUSEA
     Dosage: 60MG PER DAY
     Route: 042
     Dates: start: 20061106, end: 20061106
  9. SEROPRAM [Concomitant]
  10. TEMESTA [Concomitant]
  11. ACETAMINOPHEN AND TRAMADOL HCL [Concomitant]
  12. ACETAMINOPHEN [Concomitant]
  13. RADIOTHERAPY [Concomitant]
     Indication: CARCINOMA IN SITU
     Dosage: 66GY CYCLIC
     Dates: start: 20061105
  14. MORPHINE [Concomitant]
     Dates: start: 20061106
  15. TRANXENE [Concomitant]
     Dates: start: 20061106
  16. KYTRIL [Concomitant]
     Dates: start: 20061106
  17. REHYDRATION [Concomitant]

REACTIONS (44)
  - BRONCHIAL OBSTRUCTION [None]
  - CONJUNCTIVAL DISORDER [None]
  - CONJUNCTIVAL OEDEMA [None]
  - CORNEAL PERFORATION [None]
  - DISTURBANCE IN ATTENTION [None]
  - DYSPHAGIA [None]
  - EAR PAIN [None]
  - EYE INFECTION BACTERIAL [None]
  - EYE OPERATION [None]
  - FALL [None]
  - GLASGOW COMA SCALE ABNORMAL [None]
  - HAEMODYNAMIC INSTABILITY [None]
  - HEAD INJURY [None]
  - HISTIOCYTOSIS HAEMATOPHAGIC [None]
  - HYPOTENSION [None]
  - HYPOTHERMIA [None]
  - HYPOXIA [None]
  - IRIS ADHESIONS [None]
  - IRIS DISORDER [None]
  - KERATITIS [None]
  - LACRIMAL DISORDER [None]
  - LEUKOPENIA [None]
  - MUCOSAL INFLAMMATION [None]
  - OLIGURIA [None]
  - OTITIS MEDIA [None]
  - PLEURAL EFFUSION [None]
  - POOR PERIPHERAL CIRCULATION [None]
  - PYREXIA [None]
  - RASH MACULAR [None]
  - RASH PUSTULAR [None]
  - RENAL FAILURE [None]
  - RESPIRATORY DISTRESS [None]
  - SEPTIC SHOCK [None]
  - SERRATIA INFECTION [None]
  - SKIN DISCOLOURATION [None]
  - SKIN DISORDER [None]
  - SKIN EXFOLIATION [None]
  - SKIN LESION [None]
  - SOMNOLENCE [None]
  - STAPHYLOCOCCAL SEPSIS [None]
  - SYMBLEPHARON [None]
  - TOXIC EPIDERMAL NECROLYSIS [None]
  - ULCERATIVE KERATITIS [None]
  - VENTRICULAR HYPERTROPHY [None]
